FAERS Safety Report 10035183 (Version 2)
Quarter: 2014Q2

REPORT INFORMATION
  Report Type: Report from Study
  Country: JP (occurrence: JP)
  Receive Date: 20140325
  Receipt Date: 20140408
  Transmission Date: 20141212
  Serious: Yes (Hospitalization)
  Sender: FDA-Public Use
  Company Number: JP-ASTRAZENECA-2014SE19378

PATIENT
  Age: 29383 Day
  Sex: Male
  Weight: 76 kg

DRUGS (25)
  1. AZD6140 [Suspect]
     Indication: PERIPHERAL ARTERIAL OCCLUSIVE DISEASE
     Route: 048
     Dates: start: 20130513, end: 20140216
  2. BLOPRESS [Concomitant]
     Indication: HYPERTENSION
     Route: 048
     Dates: start: 2004
  3. CILOSTAZOL [Concomitant]
     Indication: ARTERIOSCLEROSIS
     Route: 048
     Dates: start: 2012
  4. CRESTOR [Concomitant]
     Indication: HYPERLIPIDAEMIA
     Route: 048
     Dates: start: 2005
  5. D-ALFA [Concomitant]
     Indication: OSTEOPOROSIS
     Route: 048
     Dates: start: 2004
  6. EPINASTINE HYDROCHLORIDE [Concomitant]
     Indication: ASTHMA
     Route: 048
     Dates: start: 2004
  7. FUROSEMIDE [Concomitant]
     Indication: HYPERTENSION
     Route: 048
     Dates: start: 2004
  8. INDOMETACIN [Concomitant]
     Indication: ARTHRALGIA
     Route: 062
     Dates: start: 2004
  9. JUVELA [Concomitant]
     Indication: CIRCULATORY COLLAPSE
     Route: 062
     Dates: start: 2004
  10. LOXOPROFEN [Concomitant]
     Indication: ARTHRALGIA
     Route: 048
     Dates: start: 2004
  11. MAGNESIUM OXIDE [Concomitant]
     Indication: CONSTIPATION
     Route: 048
     Dates: start: 2009
  12. MENTAX [Concomitant]
     Indication: FUNGAL INFECTION
     Route: 062
     Dates: start: 2004
  13. METHISTA [Concomitant]
     Indication: PRODUCTIVE COUGH
     Route: 048
     Dates: start: 2004
  14. LECICARBON [Concomitant]
     Indication: CONSTIPATION
     Route: 054
     Dates: start: 2009
  15. NIFLAN [Concomitant]
     Indication: EYE INFLAMMATION
     Route: 047
     Dates: start: 2012
  16. NIFEDIPINE CR [Concomitant]
     Indication: HYPERTENSION
     Route: 048
     Dates: start: 2004
  17. NOVORAPID [Concomitant]
     Indication: TYPE 2 DIABETES MELLITUS
     Route: 058
     Dates: start: 2009
  18. PREDONINE [Concomitant]
     Indication: RHEUMATOID ARTHRITIS
     Route: 048
     Dates: start: 2004
  19. PRIVINA [Concomitant]
     Indication: RHINITIS
     Route: 045
     Dates: start: 2004
  20. REBAMIPIDE [Concomitant]
     Indication: GASTRITIS PROPHYLAXIS
     Route: 048
     Dates: start: 2004
  21. SARPOGRELATE HYDROCHLORIDE [Concomitant]
     Indication: ARTERIOSCLEROSIS
     Route: 048
     Dates: start: 2011
  22. SHINLUCK [Concomitant]
     Indication: CONSTIPATION
     Route: 048
     Dates: start: 2009
  23. SYMBICORT TURBUHALER [Concomitant]
     Indication: ASTHMA
     Route: 045
     Dates: start: 2004
  24. TAMSULOSIN HYDROCHLORIDE [Concomitant]
     Indication: BENIGN PROSTATIC HYPERPLASIA
     Route: 048
     Dates: start: 2004
  25. TAPIZOL [Concomitant]
     Indication: GASTRITIS PROPHYLAXIS
     Route: 048
     Dates: start: 2004

REACTIONS (1)
  - Chronic obstructive pulmonary disease [Recovered/Resolved]
